FAERS Safety Report 5709483-8 (Version None)
Quarter: 2008Q2

REPORT INFORMATION
  Report Type: 
  Country: None (occurrence: None)
  Receive Date: 20080418
  Receipt Date: 20080407
  Transmission Date: 20081010
  Serious: Yes (Death)
  Sender: FDA-Public Use
  Company Number: JP-ROCHE-549658

PATIENT
  Sex: Male
  Weight: 60 kg

DRUGS (9)
  1. TAMIFLU [Suspect]
     Route: 048
     Dates: start: 20080220, end: 20080220
  2. DIGOXIN [Concomitant]
     Route: 048
     Dates: end: 20080220
  3. ASPIRIN [Concomitant]
     Route: 048
     Dates: end: 20080220
  4. WARFARIN [Concomitant]
     Route: 048
     Dates: end: 20080220
  5. MICARDIS [Concomitant]
     Route: 048
     Dates: end: 20080220
  6. ADALAT [Concomitant]
     Route: 048
     Dates: end: 20080220
  7. MOBIC [Concomitant]
     Route: 048
     Dates: start: 20070611, end: 20080220
  8. MYONAL [Concomitant]
     Route: 048
     Dates: start: 20070111, end: 20080220
  9. LOXONIN [Concomitant]
     Route: 048
     Dates: start: 20070101, end: 20080220

REACTIONS (1)
  - DEATH [None]
